FAERS Safety Report 8841195 (Version 1)
Quarter: 2012Q4

REPORT INFORMATION
  Report Type: Report from Study
  Country: BE (occurrence: BE)
  Receive Date: 20121015
  Receipt Date: 20121015
  Transmission Date: 20130627
  Serious: Yes (Other)
  Sender: FDA-Public Use
  Company Number: BE-ROCHE-1143974

PATIENT
  Sex: Male

DRUGS (1)
  1. BEVACIZUMAB [Suspect]
     Indication: RENAL CELL CARCINOMA
     Route: 050
     Dates: start: 20100401

REACTIONS (1)
  - Renal impairment [Unknown]
